FAERS Safety Report 12395089 (Version 1)
Quarter: 2016Q2

REPORT INFORMATION
  Report Type: Spontaneous
  Country: CH (occurrence: CH)
  Receive Date: 20160523
  Receipt Date: 20160523
  Transmission Date: 20160815
  Serious: Yes (Other)
  Sender: FDA-Public Use
  Company Number: CH-WATSON-2016-10248

PATIENT
  Age: 30 Year
  Sex: Male

DRUGS (1)
  1. BUDESONIDE (UNKNOWN) [Suspect]
     Active Substance: BUDESONIDE
     Indication: EOSINOPHILIC OESOPHAGITIS
     Dosage: 1 MG, UNKNOWN
     Route: 048

REACTIONS (1)
  - Herpes simplex oesophagitis [Recovered/Resolved]
